FAERS Safety Report 20484282 (Version 1)
Quarter: 2022Q1

REPORT INFORMATION
  Report Type: Spontaneous
  Country: US (occurrence: None)
  Receive Date: 20220216
  Receipt Date: 20220216
  Transmission Date: 20220424
  Serious: Yes (Hospitalization)
  Sender: FDA-Public Use
  Company Number: None

PATIENT
  Age: 6 Year
  Sex: Female

DRUGS (2)
  1. EPIDIOLEX [Suspect]
     Active Substance: CANNABIDIOL
     Indication: Tuberous sclerosis complex
     Dosage: FREQUENCY : TWICE A DAY;?
     Route: 048
     Dates: start: 20201001
  2. AFINITOR DISPERZ [Suspect]
     Active Substance: EVEROLIMUS
     Dates: start: 20220105, end: 20220209

REACTIONS (1)
  - Hypophagia [None]

NARRATIVE: CASE EVENT DATE: 20220208
